FAERS Safety Report 19773996 (Version 1)
Quarter: 2021Q3

REPORT INFORMATION
  Report Type: Spontaneous
  Country: CA (occurrence: CA)
  Receive Date: 20210901
  Receipt Date: 20210901
  Transmission Date: 20211014
  Serious: Yes (Other)
  Sender: FDA-Public Use
  Company Number: CA-ANIPHARMA-2021-CA-001290

PATIENT
  Age: 56 Year
  Sex: Female

DRUGS (16)
  1. PROPRANOLOL [Suspect]
     Active Substance: PROPRANOLOL HYDROCHLORIDE
     Dosage: 120 MG DAILY
     Route: 065
  2. GABAPENTIN. [Suspect]
     Active Substance: GABAPENTIN
     Route: 065
  3. ONDANSETRON [Suspect]
     Active Substance: ONDANSETRON
     Route: 065
  4. AMITRIPTYLINE [Concomitant]
     Active Substance: AMITRIPTYLINE
     Route: 065
  5. (BOTULINUM TOXIN TYPE A [Concomitant]
     Route: 065
  6. TOPAMAX [Suspect]
     Active Substance: TOPIRAMATE
     Route: 048
  7. PERINDOPRIL TERT?BUTYLAMINE SANDOZ [Suspect]
     Active Substance: PERINDOPRIL ERBUMINE
  8. AIMOVIG [Suspect]
     Active Substance: ERENUMAB-AOOE
     Route: 058
  9. CANDESARTAN CILEXETIL. [Suspect]
     Active Substance: CANDESARTAN CILEXETIL
     Indication: MIGRAINE
     Route: 048
  10. OXYCODONE [Suspect]
     Active Substance: OXYCODONE
     Route: 065
  11. DOMPERIDONE [Concomitant]
     Active Substance: DOMPERIDONE
     Route: 065
  12. VALPROATE SEMISODIUMMIGRAINE [Concomitant]
     Route: 065
  13. MIRTAZAPINE. [Suspect]
     Active Substance: MIRTAZAPINE
     Route: 048
  14. INDOMETHACIN. [Suspect]
     Active Substance: INDOMETHACIN
     Route: 065
  15. PROPRANOLOL HYDROCHLORIDE. [Suspect]
     Active Substance: PROPRANOLOL HYDROCHLORIDE
     Route: 048
  16. DULOXETINE. [Suspect]
     Active Substance: DULOXETINE
     Route: 065

REACTIONS (13)
  - Hypertension [Unknown]
  - Drug interaction [Unknown]
  - Drug intolerance [Unknown]
  - Electrocardiogram QT prolonged [Unknown]
  - Serotonin syndrome [Unknown]
  - Nephropathy toxic [Unknown]
  - Depressed level of consciousness [Unknown]
  - Mental disorder [Unknown]
  - Toxicity to various agents [Unknown]
  - Product use in unapproved indication [Unknown]
  - Contraindicated product administered [Unknown]
  - Drug ineffective [Unknown]
  - Fall [Unknown]
